FAERS Safety Report 5360859-0 (Version None)
Quarter: 2007Q2

REPORT INFORMATION
  Report Type: 
  Country: None (occurrence: None)
  Receive Date: 20070618
  Receipt Date: 20070611
  Transmission Date: 20071010
  Serious: Yes (Hospitalization, Other)
  Sender: FDA-Public Use
  Company Number: US-GENENTECH-242780

PATIENT
  Age: 79 Year
  Sex: Female

DRUGS (1)
  1. RITUXIMAB [Suspect]
     Indication: WALDENSTROM'S MACROGLOBULINAEMIA
     Dosage: 375 MG/M2, UNK

REACTIONS (1)
  - MONONEUROPATHY MULTIPLEX [None]
